FAERS Safety Report 8810686 (Version 5)
Quarter: 2013Q3

REPORT INFORMATION
  Report Type: Spontaneous
  Country: US (occurrence: US)
  Receive Date: 20120927
  Receipt Date: 20130802
  Transmission Date: 20140515
  Serious: Yes (Hospitalization, Disabling, Other)
  Sender: FDA-Public Use
  Company Number: US-009507513-1209USA007645

PATIENT
  Sex: Female

DRUGS (6)
  1. FOSAMAX [Suspect]
     Indication: OSTEOPOROSIS
     Dosage: UNK
     Route: 048
     Dates: start: 200508, end: 200810
  2. FOSAMAX [Suspect]
     Indication: OSTEOPENIA
  3. BONIVA [Suspect]
     Indication: OSTEOPOROSIS
     Dosage: UNK
     Dates: start: 200910, end: 201009
  4. BONIVA [Suspect]
     Indication: OSTEOPENIA
     Dosage: UNK
     Route: 042
     Dates: start: 2009
  5. ACTONEL [Suspect]
     Indication: OSTEOPOROSIS
     Dosage: UNK
     Dates: start: 200112, end: 200507
  6. ACTONEL [Suspect]
     Indication: OSTEOPENIA

REACTIONS (18)
  - Femur fracture [Recovered/Resolved]
  - Intramedullary rod insertion [Unknown]
  - Low turnover osteopathy [Not Recovered/Not Resolved]
  - Medical device removal [Unknown]
  - Shoulder operation [Unknown]
  - Neck surgery [Unknown]
  - Neck surgery [Unknown]
  - Peptic ulcer [Unknown]
  - Hypertension [Unknown]
  - Diabetes mellitus [Unknown]
  - Haemochromatosis [Unknown]
  - Osteoarthritis [Unknown]
  - Drug dependence [Unknown]
  - Depression [Unknown]
  - Emphysema [Unknown]
  - Musculoskeletal discomfort [Unknown]
  - Arthralgia [Not Recovered/Not Resolved]
  - Oedema peripheral [Recovered/Resolved]
